FAERS Safety Report 18876462 (Version 5)
Quarter: 2021Q2

REPORT INFORMATION
  Report Type: Report from Study
  Country: None (occurrence: US)
  Receive Date: 20210211
  Receipt Date: 20210401
  Transmission Date: 20210717
  Serious: Yes (Hospitalization, Other)
  Sender: FDA-Public Use
  Company Number: US-ABBVIE-21K-163-3767826-00

PATIENT
  Age: 74 Year
  Sex: Male
  Weight: 98.52 kg

DRUGS (11)
  1. SINEMET [Concomitant]
     Active Substance: CARBIDOPA\LEVODOPA
     Indication: PRODUCT USED FOR UNKNOWN INDICATION
     Route: 048
  2. CARBIDOPA/LEVODOPA [Concomitant]
     Active Substance: CARBIDOPA\LEVODOPA
     Indication: PRODUCT USED FOR UNKNOWN INDICATION
     Route: 048
  3. RITALIN [Concomitant]
     Active Substance: METHYLPHENIDATE HYDROCHLORIDE
     Indication: PRODUCT USED FOR UNKNOWN INDICATION
     Route: 048
  4. VITAMIN B12 [Concomitant]
     Active Substance: CYANOCOBALAMIN
     Indication: PRODUCT USED FOR UNKNOWN INDICATION
     Route: 048
  5. DUOPA [Suspect]
     Active Substance: CARBIDOPA\LEVODOPA
     Route: 050
     Dates: start: 20171027
  6. MIRTAZAPINE. [Concomitant]
     Active Substance: MIRTAZAPINE
     Indication: PRODUCT USED FOR UNKNOWN INDICATION
     Route: 048
  7. LISINOPRIL. [Concomitant]
     Active Substance: LISINOPRIL
     Indication: PRODUCT USED FOR UNKNOWN INDICATION
     Route: 048
  8. RASAGILINE. [Concomitant]
     Active Substance: RASAGILINE
     Indication: PRODUCT USED FOR UNKNOWN INDICATION
     Route: 048
  9. DUOPA [Suspect]
     Active Substance: CARBIDOPA\LEVODOPA
     Indication: PARKINSON^S DISEASE
     Dosage: STRENGTH (CMP): 4.63 MG/ML 20 MG/ML
     Route: 050
     Dates: start: 2016
  10. VITAMIN D3 [Concomitant]
     Active Substance: CHOLECALCIFEROL
     Indication: PRODUCT USED FOR UNKNOWN INDICATION
     Route: 048
  11. AMANTADINE. [Concomitant]
     Active Substance: AMANTADINE HYDROCHLORIDE
     Indication: PRODUCT USED FOR UNKNOWN INDICATION
     Route: 048

REACTIONS (19)
  - Fall [Recovering/Resolving]
  - Asthenia [Not Recovered/Not Resolved]
  - Joint injury [Not Recovered/Not Resolved]
  - Contusion [Recovering/Resolving]
  - Hallucination [Not Recovered/Not Resolved]
  - Unresponsive to stimuli [Recovered/Resolved]
  - Mastication disorder [Recovering/Resolving]
  - Unresponsive to stimuli [Recovered/Resolved]
  - Device leakage [Recovered/Resolved]
  - Weight decreased [Recovering/Resolving]
  - Skin laceration [Recovering/Resolving]
  - Gait disturbance [Not Recovered/Not Resolved]
  - Device issue [Recovered/Resolved]
  - Device breakage [Unknown]
  - Fall [Recovered/Resolved]
  - Disorientation [Unknown]
  - Skin laceration [Recovering/Resolving]
  - Skin abrasion [Recovering/Resolving]
  - Frostbite [Unknown]

NARRATIVE: CASE EVENT DATE: 2020
